FAERS Safety Report 15386332 (Version 1)
Quarter: 2018Q3

REPORT INFORMATION
  Report Type: Spontaneous
  Country: US (occurrence: US)
  Receive Date: 20180907
  Receipt Date: 20180907
  Transmission Date: 20181010
  Serious: Yes (Hospitalization)
  Sender: FDA-Public Use
  Company Number: None

PATIENT
  Age: 77 Year
  Sex: Female

DRUGS (1)
  1. REPATHA [Suspect]
     Active Substance: EVOLOCUMAB
     Indication: HYPERLIPIDAEMIA
     Dosage: ?          OTHER FREQUENCY:EVERY 14 DAYS;?
     Route: 058
     Dates: start: 20180810, end: 20180906

REACTIONS (5)
  - Blood pressure increased [None]
  - Diarrhoea [None]
  - Arthralgia [None]
  - Headache [None]
  - Injection site haemorrhage [None]

NARRATIVE: CASE EVENT DATE: 20180905
